FAERS Safety Report 19514802 (Version 1)
Quarter: 2021Q3

REPORT INFORMATION
  Report Type: Other
  Country: US (occurrence: US)
  Receive Date: 20210709
  Receipt Date: 20210709
  Transmission Date: 20211014
  Serious: Yes (Hospitalization, Other)
  Sender: FDA-Public Use
  Company Number: US-INVATECH-000108

PATIENT
  Age: 43 Year
  Sex: Male

DRUGS (8)
  1. VALPROIC ACID. [Suspect]
     Active Substance: VALPROIC ACID
     Indication: STATUS EPILEPTICUS
     Dosage: 750 MG, IV.
     Route: 042
  2. LORAZEPAM. [Concomitant]
     Active Substance: LORAZEPAM
     Indication: STATUS EPILEPTICUS
     Dosage: IV
     Route: 042
  3. LEVETIRACETAM. [Concomitant]
     Active Substance: LEVETIRACETAM
     Indication: PARTIAL SEIZURES
     Dosage: 4000 MG, DAILY.
  4. VALPROIC ACID. [Interacting]
     Active Substance: VALPROIC ACID
     Indication: PARTIAL SEIZURES
     Dosage: 2000 MG, DAILY (32 MG/KG/DAY).
  5. ZONISAMIDE. [Interacting]
     Active Substance: ZONISAMIDE
     Indication: PARTIAL SEIZURES
     Dosage: 50 MG, DAILY.
  6. VALPROIC ACID. [Interacting]
     Active Substance: VALPROIC ACID
     Indication: PARTIAL SEIZURES
     Dosage: 1500 MG, DAILY (24 MG/KG/DAY).
  7. ZONISAMIDE. [Interacting]
     Active Substance: ZONISAMIDE
     Indication: PARTIAL SEIZURES
     Dosage: 500 MG, DAILY.
  8. ZONISAMIDE. [Interacting]
     Active Substance: ZONISAMIDE
     Indication: PARTIAL SEIZURES
     Dosage: 350 MG, DAILY.

REACTIONS (10)
  - Drug level below therapeutic [Unknown]
  - Drug interaction [Unknown]
  - Seizure [Recovered/Resolved]
  - Hyperammonaemic encephalopathy [Recovering/Resolving]
  - Respiratory distress [Unknown]
  - Cytotoxic oedema [Recovering/Resolving]
  - Weight increased [Unknown]
  - Pneumonia [Unknown]
  - Metabolic acidosis [Unknown]
  - Abulia [Unknown]
